FAERS Safety Report 16692086 (Version 1)
Quarter: 2019Q3

REPORT INFORMATION
  Report Type: Spontaneous
  Country: US (occurrence: US)
  Receive Date: 20190809
  Receipt Date: 20190809
  Transmission Date: 20191004
  Serious: No
  Sender: FDA-Public Use
  Company Number: None

PATIENT
  Age: 23 Year
  Sex: Female
  Weight: 56.25 kg

DRUGS (1)
  1. EMGALITY [Suspect]
     Active Substance: GALCANEZUMAB-GNLM

REACTIONS (10)
  - Muscle spasms [None]
  - Skin exfoliation [None]
  - Neck pain [None]
  - Scab [None]
  - Drug ineffective [None]
  - Back pain [None]
  - Rash macular [None]
  - Pruritus [None]
  - Arthralgia [None]
  - Gait disturbance [None]
